FAERS Safety Report 9374070 (Version 3)
Quarter: 2014Q3

REPORT INFORMATION
  Report Type: Spontaneous
  Country: US (occurrence: US)
  Receive Date: 20130628
  Receipt Date: 20140821
  Transmission Date: 20150326
  Serious: Yes (Hospitalization, Other)
  Sender: FDA-Public Use
  Company Number: US-BIOGENIDEC-2013BI055413

PATIENT
  Age: 61 Year
  Sex: Female

DRUGS (6)
  1. TYSABRI [Suspect]
     Active Substance: NATALIZUMAB
     Indication: MULTIPLE SCLEROSIS
     Route: 042
     Dates: start: 20130430, end: 20130605
  2. FOSAMAX [Concomitant]
     Active Substance: ALENDRONATE SODIUM
  3. RECLAST [Concomitant]
     Active Substance: ZOLEDRONIC ACID
  4. CYMBALTA [Concomitant]
     Active Substance: DULOXETINE HYDROCHLORIDE
  5. BACLOFEN. [Concomitant]
     Active Substance: BACLOFEN
     Route: 037
  6. TYSABRI [Suspect]
     Active Substance: NATALIZUMAB
     Indication: MULTIPLE SCLEROSIS
     Route: 042
     Dates: start: 20071105, end: 20130319

REACTIONS (3)
  - Confusional state [Unknown]
  - Speech disorder [Unknown]
  - Herpes simplex meningoencephalitis [Not Recovered/Not Resolved]

NARRATIVE: CASE EVENT DATE: 20130614
